FAERS Safety Report 15436307 (Version 1)
Quarter: 2018Q3

REPORT INFORMATION
  Report Type: Spontaneous
  Country: US (occurrence: US)
  Receive Date: 20180924
  Receipt Date: 20180924
  Transmission Date: 20181010
  Serious: No
  Sender: FDA-Public Use
  Company Number: None

PATIENT
  Age: 59 Year
  Sex: Male
  Weight: 117 kg

DRUGS (17)
  1. LAMOTRIGINE. [Concomitant]
     Active Substance: LAMOTRIGINE
  2. LORATADINE. [Concomitant]
     Active Substance: LORATADINE
  3. L?METHYLFOLATE [Concomitant]
     Active Substance: LEVOMEFOLIC ACID
  4. ARMODAFINIL. [Suspect]
     Active Substance: ARMODAFINIL
     Indication: SOMNOLENCE
     Dosage: ?          QUANTITY:1 TABLET(S);?
     Route: 048
     Dates: start: 20180922, end: 20180924
  5. CIALIS [Concomitant]
     Active Substance: TADALAFIL
  6. ARMODAFINIL. [Suspect]
     Active Substance: ARMODAFINIL
     Indication: FATIGUE
     Dosage: ?          QUANTITY:1 TABLET(S);?
     Route: 048
     Dates: start: 20180922, end: 20180924
  7. OMEPRAZOLE. [Concomitant]
     Active Substance: OMEPRAZOLE
  8. FISH OIL [Concomitant]
     Active Substance: FISH OIL
  9. MULTI VITAMIN [Concomitant]
     Active Substance: VITAMINS
  10. ARMODAFINIL. [Suspect]
     Active Substance: ARMODAFINIL
     Indication: MAJOR DEPRESSION
     Dosage: ?          QUANTITY:1 TABLET(S);?
     Route: 048
     Dates: start: 20180922, end: 20180924
  11. BUPROPION XL [Concomitant]
     Active Substance: BUPROPION
  12. ARMODAFINIL. [Concomitant]
     Active Substance: ARMODAFINIL
  13. LIOTHYRONINE [Concomitant]
     Active Substance: LIOTHYRONINE
  14. FOLATE [Concomitant]
     Active Substance: FOLATE SODIUM
  15. METOPROLOL. [Concomitant]
     Active Substance: METOPROLOL
  16. LORAZEPAM. [Concomitant]
     Active Substance: LORAZEPAM
  17. VITAMIN D3 [Concomitant]
     Active Substance: CHOLECALCIFEROL

REACTIONS (5)
  - Product substitution issue [None]
  - Drug effect decreased [None]
  - Lethargy [None]
  - Anger [None]
  - Malaise [None]

NARRATIVE: CASE EVENT DATE: 20180922
